FAERS Safety Report 15567459 (Version 2)
Quarter: 2018Q4

REPORT INFORMATION
  Report Type: Report from Study
  Country: CA (occurrence: CA)
  Receive Date: 20181030
  Receipt Date: 20181112
  Transmission Date: 20190205
  Serious: Yes (Death, Other)
  Sender: FDA-Public Use
  Company Number: CA-TAKEDA-2018TUS029099

PATIENT
  Age: 84 Year
  Sex: Female

DRUGS (2)
  1. CLAVULIN                           /00756801/ [Suspect]
     Active Substance: AMOXICILLIN\CLAVULANIC ACID
     Indication: PRODUCT USED FOR UNKNOWN INDICATION
     Dosage: UNK UNK, BID
     Route: 065
     Dates: start: 20181013, end: 20181015
  2. VEDOLIZUMAB [Suspect]
     Active Substance: VEDOLIZUMAB
     Indication: COLITIS ULCERATIVE
     Dosage: 300 MG, UNK
     Route: 042
     Dates: start: 20180713

REACTIONS (9)
  - Blood urine present [Unknown]
  - Cerebrovascular accident [Fatal]
  - Abdominal pain upper [Unknown]
  - Pleural effusion [Unknown]
  - Colitis ulcerative [Unknown]
  - Back pain [Unknown]
  - Faeces soft [Unknown]
  - Chills [Unknown]
  - Pyrexia [Unknown]

NARRATIVE: CASE EVENT DATE: 20181015
